FAERS Safety Report 5646475-1 (Version None)
Quarter: 2008Q1

REPORT INFORMATION
  Report Type: 
  Country: None (occurrence: None)
  Receive Date: 20080227
  Receipt Date: 20080213
  Transmission Date: 20080703
  Serious: Yes (Hospitalization)
  Sender: FDA-Public Use
  Company Number: A-CH2007-17985

PATIENT
  Age: 72 Year
  Sex: Male
  Weight: 65 kg

DRUGS (7)
  1. ZAVESCA [Suspect]
     Indication: GAUCHER'S DISEASE
     Dosage: 100 MG, TID, ORAL
     Route: 048
     Dates: end: 20070615
  2. CEREZYME (IMIGLUCERASE) [Concomitant]
  3. MADOPAR (BENSERAZIDE, LEVODOPA) [Concomitant]
  4. SINEMET [Concomitant]
  5. EXELON [Concomitant]
  6. ZOLOFT [Concomitant]
  7. CALCIUM D3 (COLECALCIFEROL, CALCIUM) [Concomitant]

REACTIONS (1)
  - PROSTATITIS [None]
